FAERS Safety Report 6155347-8 (Version None)
Quarter: 2009Q2

REPORT INFORMATION
  Report Type: 
  Country: None (occurrence: None)
  Receive Date: 20090415
  Receipt Date: 20090407
  Transmission Date: 20091009
  Serious: Yes (Other)
  Sender: FDA-Public Use
  Company Number: GB-ASTRAZENECA-2009GB00860

PATIENT
  Age: 73 Year
  Sex: Female

DRUGS (7)
  1. FELODIPINE [Suspect]
     Indication: HYPERTENSION
     Route: 048
     Dates: start: 20090303, end: 20090315
  2. FOLIC ACID [Concomitant]
     Indication: RHEUMATOID ARTHRITIS
  3. INDAPAMIDE [Concomitant]
     Indication: HYPERTENSION
  4. METHOTREXATE [Concomitant]
     Indication: RHEUMATOID ARTHRITIS
     Route: 048
  5. PERINDOPRIL ERBUMINE [Concomitant]
     Indication: HYPERTENSION
  6. RELIFEX [Concomitant]
     Indication: RHEUMATOID ARTHRITIS
     Route: 048
  7. SULFASALAZINE [Concomitant]

REACTIONS (3)
  - ARTHRALGIA [None]
  - EYE PAIN [None]
  - RHEUMATOID ARTHRITIS [None]
